FAERS Safety Report 12824958 (Version 6)
Quarter: 2020Q1

REPORT INFORMATION
  Report Type: Report from Study
  Country: DE (occurrence: DE)
  Receive Date: 20161007
  Receipt Date: 20200225
  Transmission Date: 20200409
  Serious: Yes (Hospitalization)
  Sender: FDA-Public Use
  Company Number: DE-BIOGEN-2016BI00268197

PATIENT
  Age: 34 Year
  Sex: Female
  Weight: 74 kg

DRUGS (8)
  1. FLUOXETINE [Concomitant]
     Active Substance: FLUOXETINE HYDROCHLORIDE
     Route: 050
     Dates: start: 20160702
  2. SPASMEX [Concomitant]
     Indication: BLADDER DISORDER
     Route: 050
     Dates: start: 201503, end: 201504
  3. FLUOXETINE [Concomitant]
     Active Substance: FLUOXETINE HYDROCHLORIDE
     Route: 050
  4. FLUOXETINE [Concomitant]
     Active Substance: FLUOXETINE HYDROCHLORIDE
     Indication: FATIGUE
     Route: 050
     Dates: start: 20150702, end: 201509
  5. LYRICA [Concomitant]
     Active Substance: PREGABALIN
     Indication: PAIN
     Route: 050
     Dates: start: 20150702, end: 20160406
  6. GABAPENTIN. [Concomitant]
     Active Substance: GABAPENTIN
     Indication: PAIN
     Route: 050
     Dates: start: 20160407, end: 20160429
  7. PANTOPRAZOLE [Concomitant]
     Active Substance: PANTOPRAZOLE
     Indication: PROPHYLAXIS
     Route: 050
     Dates: start: 20161001, end: 20161010
  8. TYSABRI [Suspect]
     Active Substance: NATALIZUMAB
     Indication: MULTIPLE SCLEROSIS
     Route: 050
     Dates: start: 20141104, end: 20160728

REACTIONS (6)
  - Morning sickness [Recovered/Resolved]
  - Maternal exposure during pregnancy [Recovered/Resolved]
  - Bronchitis [Recovered/Resolved]
  - Erythema nodosum [Recovered/Resolved]
  - Ear infection [Recovered/Resolved]
  - Cough [Recovered/Resolved]

NARRATIVE: CASE EVENT DATE: 20160901
